FAERS Safety Report 17335965 (Version 1)
Quarter: 2020Q1

REPORT INFORMATION
  Report Type: Spontaneous
  Country: GB (occurrence: GB)
  Receive Date: 20200128
  Receipt Date: 20200128
  Transmission Date: 20200409
  Serious: Yes (Life-Threatening)
  Sender: FDA-Public Use
  Company Number: GB-TEVA-2020-GB-1173740

PATIENT
  Age: 55 Year
  Sex: Male

DRUGS (13)
  1. EMULSIFYING OINTMENT [Concomitant]
     Dosage: APPLY AS DIRECTED
     Route: 061
  2. DERMOL [Concomitant]
     Active Substance: BENZALKONIUM CHLORIDE\CHLORHEXIDINE HYDROCHLORIDE\ISOPROPYL MYRISTATE\PARAFFIN
     Dosage: FOR WASHING
     Route: 061
  3. METHADONE [Suspect]
     Active Substance: METHADONE HYDROCHLORIDE
     Indication: PNEUMONIA
     Dosage: 1MG/ML
     Route: 048
  4. HYPROMELLOSE [Concomitant]
     Active Substance: HYPROMELLOSES
     Route: 031
  5. HYDROCORTISONE. [Concomitant]
     Active Substance: HYDROCORTISONE
     Dosage: THINLY TO FACE. 2 DOSAGE FORM
     Route: 061
  6. CLOBETASOL [Concomitant]
     Active Substance: CLOBETASOL
     Dosage: APPLY AS DIRECTED
     Route: 061
  7. CLARITHROMYCIN. [Suspect]
     Active Substance: CLARITHROMYCIN
     Indication: PNEUMONIA
     Dosage: 1000 MG
     Route: 048
     Dates: start: 20191130, end: 20191130
  8. BETAMETHASONE. [Concomitant]
     Active Substance: BETAMETHASONE
     Dosage: APPLY. 2 DOSAGE FORM
     Route: 061
  9. PARAFFIN, YELLOW SOFT [Concomitant]
     Dosage: MDU
     Route: 061
  10. E45 [Concomitant]
     Active Substance: LANOLIN\LIGHT MINERAL OIL\PARAFFIN
     Dosage: APPLY
     Route: 061
  11. SALBUTAMOL [Concomitant]
     Active Substance: ALBUTEROL
     Dosage: 100 MICROGRAM
     Route: 055
  12. LIQUID PARAFFIN [Concomitant]
     Dosage: AS DIRECTED, LIGHT
     Route: 061
  13. PARAFFIN WHITE SOFT [Concomitant]
     Dosage: MDU
     Route: 061

REACTIONS (2)
  - Electrocardiogram QRS complex prolonged [Recovered/Resolved]
  - Cardiac arrest [Recovered/Resolved]

NARRATIVE: CASE EVENT DATE: 20191130
